FAERS Safety Report 4975569-9 (Version None)
Quarter: 2006Q1

REPORT INFORMATION
  Report Type: 
  Country: None (occurrence: None)
  Receive Date: 20060222
  Receipt Date: 20051116
  Transmission Date: 20060701
  Serious: Yes (Other)
  Sender: FDA-Public Use
  Company Number: HQWYE662722NOV05

PATIENT
  Age: 47 Year
  Sex: Female

DRUGS (3)
  1. PROTONIX [Suspect]
     Indication: HELICOBACTER INFECTION
     Dates: start: 20040903
  2. METRONIDAZOLE [Suspect]
     Indication: HELICOBACTER INFECTION
     Dosage: 250 MG 4 X PER 1 DAY, ORAL
     Route: 048
     Dates: start: 20050903
  3. TETRACYCLINE [Concomitant]

REACTIONS (4)
  - BLOOD PRESSURE INCREASED [None]
  - DIZZINESS [None]
  - FLUSHING [None]
  - FOOD INTERACTION [None]
